FAERS Safety Report 24350659 (Version 4)
Quarter: 2024Q4

REPORT INFORMATION
  Report Type: Spontaneous
  Country: US (occurrence: US)
  Receive Date: 20240923
  Receipt Date: 20241112
  Transmission Date: 20250115
  Serious: No
  Sender: PFIZER
  Company Number: US-PFIZER INC-202400258522

PATIENT
  Age: 24 Year
  Sex: Female
  Weight: 58.97 kg

DRUGS (8)
  1. GENOTROPIN [Suspect]
     Active Substance: SOMATROPIN
     Indication: Growth hormone deficiency
     Dosage: 1 DF, DAILY (1 CLICK EVERY NIGHT, ADMINISTERED IN HER THIGH AND ALTERNATE)
     Dates: start: 2003
  2. LEVOTHYROXINE [Concomitant]
     Active Substance: LEVOTHYROXINE
     Indication: Thyroid disorder
     Dosage: 1 DF CRUSHED THROUGH HER G-TUBE, TAKES 6 DAYS A WEEK
  3. ELIQUIS [Concomitant]
     Active Substance: APIXABAN
     Indication: Anticoagulant therapy
     Dosage: 5 MG, 2X/DAY CRUSHED THROUGH G-TUBE
  4. PHENOBARBITAL [Concomitant]
     Active Substance: PHENOBARBITAL
     Indication: Seizure
     Dosage: 35 ML (10 ML IN THE MORNING, 25 ML AT NIGHT THROUGH HER G TUBE)
  5. LACOSAMIDE [Concomitant]
     Active Substance: LACOSAMIDE
     Indication: Seizure
     Dosage: 20 ML, 2X/DAY THROUGH HER G-TUBE
  6. EPIDIOLEX [Concomitant]
     Active Substance: CANNABIDIOL
     Indication: Seizure
     Dosage: 3.3 ML, 2X/DAY THROUGH HER G-TUBE
  7. OXCARBAZEPINE [Concomitant]
     Active Substance: OXCARBAZEPINE
     Indication: Seizure
     Dosage: 1 ML, 2X/DAY THROUGH HER G-TUBE
  8. NAYZILAM [Concomitant]
     Active Substance: MIDAZOLAM
     Indication: Seizure
     Dosage: UNK (5 MG/0.1 ML, ONE SPRAY IN ONE NOSTRIL)
     Route: 045

REACTIONS (2)
  - Drug dose omission by device [Unknown]
  - Device delivery system issue [Unknown]

NARRATIVE: CASE EVENT DATE: 20240915
